FAERS Safety Report 14174614 (Version 5)
Quarter: 2018Q2

REPORT INFORMATION
  Report Type: Report from Study
  Country: None (occurrence: US)
  Receive Date: 20171109
  Receipt Date: 20180509
  Transmission Date: 20180711
  Serious: Yes (Other)
  Sender: FDA-Public Use
  Company Number: US-ABBVIE-17K-163-2153953-00

PATIENT
  Age: 62 Year
  Sex: Male
  Weight: 86.26 kg

DRUGS (3)
  1. PREDNISONE. [Concomitant]
     Active Substance: PREDNISONE
     Indication: PRODUCT USED FOR UNKNOWN INDICATION
  2. HUMIRA [Suspect]
     Active Substance: ADALIMUMAB
     Indication: UVEITIS
     Route: 058
     Dates: start: 20170602
  3. CELLCEPT [Concomitant]
     Active Substance: MYCOPHENOLATE MOFETIL\MYCOPHENOLATE MOFETIL HYDROCHLORIDE
     Indication: UVEITIS

REACTIONS (4)
  - Uveitis [Recovering/Resolving]
  - Macular oedema [Unknown]
  - Glaucoma [Recovered/Resolved]
  - Macular cyst [Recovering/Resolving]

NARRATIVE: CASE EVENT DATE: 201709
